FAERS Safety Report 9943432 (Version 1)
Quarter: 2014Q1

REPORT INFORMATION
  Report Type: Report from Study
  Country: NL (occurrence: NL)
  Receive Date: 20140303
  Receipt Date: 20140303
  Transmission Date: 20141002
  Serious: Yes (Death)
  Sender: FDA-Public Use
  Company Number: PHHY2014NL025148

PATIENT
  Sex: Male

DRUGS (3)
  1. TOBI [Suspect]
     Indication: LUNG LOBECTOMY
     Dosage: UNK
  2. IPRAMOL [Concomitant]
     Dosage: UNK
  3. FLUIMICIL [Concomitant]
     Dosage: UNK

REACTIONS (1)
  - Death [Fatal]
